FAERS Safety Report 7042414-X (Version None)
Quarter: 2010Q4

REPORT INFORMATION
  Report Type: 
  Country: None (occurrence: None)
  Receive Date: 20101013
  Receipt Date: 20100809
  Transmission Date: 20110411
  Serious: No
  Sender: FDA-Public Use
  Company Number: US-ASTRAZENECA-2010SE37262

PATIENT
  Age: 88 Year
  Sex: Female
  Weight: 61.2 kg

DRUGS (5)
  1. SYMBICORT [Suspect]
     Indication: ASTHMA
     Dosage: TOTAL DAILY DOSE 80, 2 PUFFS IN THE MORNING AND EVENING
     Route: 055
     Dates: start: 20100101
  2. CRESTOR [Suspect]
     Route: 048
  3. LISINOPRIL [Concomitant]
     Indication: BLOOD PRESSURE
  4. FOSAMAX [Concomitant]
  5. CLARITIN [Concomitant]

REACTIONS (3)
  - COUGH [None]
  - INCREASED UPPER AIRWAY SECRETION [None]
  - RHINORRHOEA [None]
